FAERS Safety Report 23267345 (Version 3)
Quarter: 2025Q2

REPORT INFORMATION
  Report Type: Spontaneous
  Country: US (occurrence: US)
  Receive Date: 20231206
  Receipt Date: 20250530
  Transmission Date: 20250716
  Serious: No
  Sender: SANOFI AVENTIS
  Company Number: US-SA-SAC20231205000307

PATIENT
  Age: 47 Year
  Sex: Male

DRUGS (22)
  1. DUPIXENT [Suspect]
     Active Substance: DUPILUMAB
     Indication: Asthma
     Dosage: 300 MG, QOW
     Route: 058
     Dates: start: 20231205
  2. ASPIRIN [Concomitant]
     Active Substance: ASPIRIN
  3. CALCITRIOL [Concomitant]
     Active Substance: CALCITRIOL
  4. HYDROXYZINE HYDROCHLORIDE [Concomitant]
     Active Substance: HYDROXYZINE HYDROCHLORIDE
  5. LASIX [Concomitant]
     Active Substance: FUROSEMIDE
  6. MULTIVITAMINS WITH IRON [ASCORBIC ACID;CYANOCOBALAMIN;ERGOCALCIFEROL;F [Concomitant]
  7. NORVASC [Concomitant]
     Active Substance: AMLODIPINE BESYLATE
  8. MAGNESIUM [Concomitant]
     Active Substance: MAGNESIUM
  9. FUROSEMIDE [Concomitant]
     Active Substance: FUROSEMIDE
  10. VENTOLIN [Concomitant]
     Active Substance: ALBUTEROL SULFATE
  11. FLUOROMETHOLONE [Concomitant]
     Active Substance: FLUOROMETHOLONE
  12. METHOCARBAMOL [Concomitant]
     Active Substance: METHOCARBAMOL
  13. ALLOPURINOL [Concomitant]
     Active Substance: ALLOPURINOL
  14. ALBUTEROL [Concomitant]
     Active Substance: ALBUTEROL
  15. CARVEDILOL [Concomitant]
     Active Substance: CARVEDILOL
  16. DOXYCYCLINE [Concomitant]
     Active Substance: DOXYCYCLINE
  17. HYDRALAZINE [Concomitant]
     Active Substance: HYDRALAZINE HYDROCHLORIDE
  18. SPIRIVA [Concomitant]
     Active Substance: TIOTROPIUM BROMIDE MONOHYDRATE
  19. MICRO K [Concomitant]
  20. SYMBICORT [Concomitant]
     Active Substance: BUDESONIDE\FORMOTEROL FUMARATE DIHYDRATE
  21. SERTRALINE [Concomitant]
     Active Substance: SERTRALINE HYDROCHLORIDE
  22. CYCLOBENZAPRINE [Concomitant]
     Active Substance: CYCLOBENZAPRINE

REACTIONS (2)
  - Impaired quality of life [Not Recovered/Not Resolved]
  - Hypotension [Not Recovered/Not Resolved]
